FAERS Safety Report 8520843-2 (Version None)
Quarter: 2012Q3

REPORT INFORMATION
  Report Type: 
  Country: None (occurrence: None)
  Receive Date: 20120719
  Receipt Date: 20120717
  Transmission Date: 20120928
  Serious: No
  Sender: FDA-Public Use
  Company Number: US-B.I. PHARMACEUTICALS,INC./RIDGEFIELD-2011-BP-14957BP

PATIENT
  Age: 72 Year
  Sex: Male

DRUGS (9)
  1. ACCUPRIL [Concomitant]
     Indication: HYPERTENSION
     Route: 048
  2. QUINAPRIL [Concomitant]
     Indication: HYPERTENSION
     Dosage: 40 MG
     Route: 048
  3. METOPROLOL SUCCINATE [Concomitant]
     Indication: HYPERTENSION
     Dosage: 12.5 MG
     Route: 048
  4. METFORMIN HYDROCHLORIDE [Concomitant]
     Indication: DIABETES MELLITUS
     Route: 048
  5. PRAVACHOL [Concomitant]
     Indication: BLOOD CHOLESTEROL INCREASED
     Dosage: 40 MG
     Route: 048
  6. PRADAXA [Suspect]
     Indication: ATRIAL FIBRILLATION
     Dosage: 300 MG
     Route: 048
     Dates: start: 20101001
  7. SYNTHROID [Concomitant]
     Indication: HYPOTHYROIDISM
     Dosage: 75 MG
     Route: 048
  8. GLYBURIDE [Concomitant]
     Indication: DIABETES MELLITUS
     Dosage: 75 MG
     Route: 048
  9. AMLODIPINE [Concomitant]
     Indication: HYPERTENSION
     Dosage: 10 MG
     Route: 048

REACTIONS (5)
  - BLOODY DISCHARGE [None]
  - DYSGEUSIA [None]
  - OEDEMA PERIPHERAL [None]
  - HAEMOPTYSIS [None]
  - JOINT SWELLING [None]
